FAERS Safety Report 7089056-8 (Version None)
Quarter: 2010Q4

REPORT INFORMATION
  Report Type: 
  Country: None (occurrence: None)
  Receive Date: 20101108
  Receipt Date: 20101029
  Transmission Date: 20110411
  Serious: Yes (Other)
  Sender: FDA-Public Use
  Company Number: B0674025A

PATIENT
  Sex: Male

DRUGS (3)
  1. ZOVIRAX [Suspect]
     Indication: HERPES ZOSTER
     Dosage: 750MG PER DAY
     Route: 042
     Dates: start: 20100902, end: 20100905
  2. ZOVIRAX [Suspect]
     Dosage: 250MG PER DAY
     Route: 042
     Dates: start: 20100906, end: 20100906
  3. ZOVIRAX [Suspect]
     Dosage: 125MG PER DAY
     Route: 042
     Dates: start: 20100907, end: 20100907

REACTIONS (3)
  - AGITATION [None]
  - DELIRIUM [None]
  - HALLUCINATION [None]
